FAERS Safety Report 9046952 (Version 1)
Quarter: 2013Q1

REPORT INFORMATION
  Report Type: Spontaneous
  Country: US (occurrence: None)
  Receive Date: 20130129
  Receipt Date: 20130129
  Transmission Date: 20140127
  Serious: Yes (Hospitalization)
  Sender: FDA-Public Use
  Company Number: None

PATIENT
  Age: 55 Year
  Sex: Male
  Weight: 111 kg

DRUGS (1)
  1. XARELTO 20MG JANSSEN [Suspect]
     Indication: HYPERTENSION
     Dosage: 20MG DAILY PO
     Route: 048

REACTIONS (1)
  - Epistaxis [None]
